FAERS Safety Report 5246999-5 (Version None)
Quarter: 2007Q1

REPORT INFORMATION
  Report Type: 
  Country: None (occurrence: None)
  Receive Date: 20070226
  Receipt Date: 20070223
  Transmission Date: 20070707
  Serious: Yes (Life-Threatening)
  Sender: FDA-Public Use
  Company Number: JP-GLAXOSMITHKLINE-B0457767A

PATIENT
  Age: 89 Year
  Sex: Female
  Weight: 42 kg

DRUGS (5)
  1. PAXIL [Suspect]
     Indication: DEPRESSION
     Dosage: 10MG PER DAY
     Route: 048
     Dates: start: 20061016, end: 20061115
  2. OLMETEC [Concomitant]
     Indication: HYPERTENSION
     Dosage: 20MG PER DAY
     Route: 048
  3. CONIEL [Concomitant]
     Indication: HYPERTENSION
     Dosage: 4MG PER DAY
     Route: 048
  4. CHINESE MEDICINE [Concomitant]
     Indication: TINNITUS
     Dosage: 7.5MG PER DAY
     Route: 048
     Dates: start: 20060515
  5. CHINESE MEDICATION [Concomitant]
     Indication: ANXIETY
     Dosage: 7.5MG PER DAY
     Route: 048

REACTIONS (5)
  - DECREASED APPETITE [None]
  - DEPRESSION [None]
  - DRUG WITHDRAWAL SYNDROME [None]
  - HYPERHIDROSIS [None]
  - WEIGHT DECREASED [None]
